FAERS Safety Report 7416156-2 (Version None)
Quarter: 2011Q2

REPORT INFORMATION
  Report Type: 
  Country: None (occurrence: None)
  Receive Date: 20110414
  Receipt Date: 20110317
  Transmission Date: 20111010
  Serious: No
  Sender: FDA-Public Use
  Company Number: US-B.I. PHARMACEUTICALS,INC./RIDGEFIELD-2011-BP-08596BP

PATIENT
  Age: 87 Year
  Sex: Female

DRUGS (7)
  1. PRADAXA [Suspect]
     Indication: ATRIAL FIBRILLATION
     Dosage: 300 MG
     Route: 048
     Dates: start: 20110305
  2. BENAZEPRIL HYDROCHLORIDE [Concomitant]
  3. FELODIPINE [Concomitant]
  4. ATENOLOL [Concomitant]
  5. LIPITOR [Concomitant]
  6. HYDROCHLOROTHIAZIDE [Concomitant]
  7. LEVOTHYROXINE [Concomitant]

REACTIONS (5)
  - BACK PAIN [None]
  - EPISTAXIS [None]
  - DIZZINESS [None]
  - TINNITUS [None]
  - SINUS CONGESTION [None]
